FAERS Safety Report 22609751 (Version 2)
Quarter: 2023Q2

REPORT INFORMATION
  Report Type: Spontaneous
  Country: SK (occurrence: SK)
  Receive Date: 20230616
  Receipt Date: 20230622
  Transmission Date: 20230722
  Serious: Yes (Death, Other)
  Sender: FDA-Public Use
  Company Number: SK-GILEAD-2023-0632830

PATIENT
  Age: 57 Year
  Sex: Female

DRUGS (10)
  1. VEKLURY [Suspect]
     Active Substance: REMDESIVIR
     Indication: COVID-19
     Dosage: UNK
     Route: 065
     Dates: start: 20210118, end: 20210122
  2. VEKLURY [Suspect]
     Active Substance: REMDESIVIR
     Indication: COVID-19 pneumonia
  3. OXYGEN [Concomitant]
     Active Substance: OXYGEN
     Dosage: INITIALLY LOW-FLOW
  4. OXYGEN [Concomitant]
     Active Substance: OXYGEN
     Dosage: HIGH-FLOW
     Dates: start: 20201220
  5. AZACITIDINE [Concomitant]
     Active Substance: AZACITIDINE
     Dosage: UNK
     Dates: start: 202012
  6. VENETOCLAX [Concomitant]
     Active Substance: VENETOCLAX
     Dosage: UNK
     Dates: start: 202012
  7. HEMATOLOGICAL GROWTH FACTORS [Concomitant]
     Dosage: UNK
     Dates: start: 202012
  8. HUMAN RED BLOOD CELL [Concomitant]
     Active Substance: HUMAN RED BLOOD CELL
     Dosage: UNK
     Dates: start: 202012
  9. PLATELETS [Concomitant]
     Active Substance: HUMAN PLATELET, ALLOGENIC
     Dosage: UNK
     Dates: start: 202012
  10. DEXAMETHASONE [Concomitant]
     Active Substance: DEXAMETHASONE
     Dosage: UNK
     Dates: start: 202012

REACTIONS (3)
  - Death [Fatal]
  - General physical health deterioration [Not Recovered/Not Resolved]
  - Urinary tract candidiasis [Unknown]

NARRATIVE: CASE EVENT DATE: 20210124
